FAERS Safety Report 11795619 (Version 2)
Quarter: 2016Q2

REPORT INFORMATION
  Report Type: Spontaneous
  Country: DE (occurrence: DE)
  Receive Date: 20151202
  Receipt Date: 20160616
  Transmission Date: 20160815
  Serious: Yes (Death, Hospitalization, Other)
  Sender: FDA-Public Use
  Company Number: DE-BRISTOL-MYERS SQUIBB COMPANY-BMS-2015-056052

PATIENT
  Age: 61 Year
  Sex: Female

DRUGS (4)
  1. OPDIVO [Suspect]
     Active Substance: NIVOLUMAB
     Dosage: 160 MG, UNK
     Route: 065
     Dates: start: 20150814
  2. OPDIVO [Suspect]
     Active Substance: NIVOLUMAB
     Indication: BLADDER TRANSITIONAL CELL CARCINOMA
     Dosage: UNK
     Route: 065
     Dates: start: 20150724
  3. OPDIVO [Suspect]
     Active Substance: NIVOLUMAB
     Dosage: 140 MG, UNK
     Route: 065
     Dates: start: 20150731
  4. OPDIVO [Suspect]
     Active Substance: NIVOLUMAB
     Indication: NEOPLASM MALIGNANT
     Dosage: 140 MG, UNK
     Route: 065
     Dates: start: 20150717, end: 20150903

REACTIONS (10)
  - Fatigue [Unknown]
  - Heart rate increased [Unknown]
  - Lymphangiosis carcinomatosa [Fatal]
  - Mobility decreased [Unknown]
  - Respiratory failure [Fatal]
  - Pyrexia [Unknown]
  - Dyspnoea [Unknown]
  - Movement disorder [Unknown]
  - Headache [Recovering/Resolving]
  - Off label use [Unknown]

NARRATIVE: CASE EVENT DATE: 20150724
